FAERS Safety Report 23789082 (Version 1)
Quarter: 2024Q2

REPORT INFORMATION
  Report Type: Report from Study
  Country: CA (occurrence: CA)
  Receive Date: 20240426
  Receipt Date: 20240426
  Transmission Date: 20240716
  Serious: Yes (Other)
  Sender: FDA-Public Use
  Company Number: CA-SAMSUNG BIOEPIS-SB-2024-12088

PATIENT
  Age: 38 Year
  Sex: Male
  Weight: 73 kg

DRUGS (2)
  1. HADLIMA [Suspect]
     Active Substance: ADALIMUMAB-BWWD
     Indication: Crohn^s disease
     Dosage: 40MG/0.4ML, Q2 WEEKS
     Route: 065
     Dates: start: 20240329
  2. PREDNISONE [Concomitant]
     Active Substance: PREDNISONE
     Indication: Product used for unknown indication
     Route: 065

REACTIONS (5)
  - Fistula of small intestine [Unknown]
  - Colonic fistula [Unknown]
  - Colonic abscess [Unknown]
  - Abdominal pain [Unknown]
  - Abscess intestinal [Unknown]
